FAERS Safety Report 21483704 (Version 1)
Quarter: 2022Q4

REPORT INFORMATION
  Report Type: Spontaneous
  Country: US (occurrence: US)
  Receive Date: 20221020
  Receipt Date: 20221020
  Transmission Date: 20230113
  Serious: Yes (Hospitalization, Other)
  Sender: FDA-Public Use
  Company Number: US-ORG100016242-2022002896

PATIENT

DRUGS (9)
  1. EXPAREL [Suspect]
     Active Substance: BUPIVACAINE
     Indication: Postoperative analgesia
     Dosage: 20 CC
     Route: 065
  2. BUPIVACAINE [Concomitant]
     Active Substance: BUPIVACAINE
     Indication: Postoperative analgesia
     Dosage: 40 CC
     Route: 065
  3. SODIUM CHLORIDE [Concomitant]
     Active Substance: SODIUM CHLORIDE
     Indication: Postoperative analgesia
     Route: 065
  4. MIDAZOLAM [Concomitant]
     Active Substance: MIDAZOLAM
     Indication: Preoperative care
     Dosage: 1-2 MG
     Route: 042
  5. FENTANYL [Concomitant]
     Active Substance: FENTANYL
     Indication: Perioperative analgesia
     Dosage: NOT PROVIDED
     Route: 042
  6. ONDANSETRON [Concomitant]
     Active Substance: ONDANSETRON
     Indication: Perioperative analgesia
     Route: 042
  7. ACETAMINOPHEN [Concomitant]
     Active Substance: ACETAMINOPHEN
     Indication: Perioperative analgesia
     Dosage: NOT PROVIDED
     Route: 042
  8. ACETAMINOPHEN [Concomitant]
     Active Substance: ACETAMINOPHEN
     Indication: Perioperative analgesia
     Dosage: NOT PROVIDED
     Route: 048
  9. OXYCODONE [Concomitant]
     Active Substance: OXYCODONE
     Indication: Perioperative analgesia
     Dosage: 5-10 MG
     Route: 042

REACTIONS (9)
  - Endotracheal intubation [Unknown]
  - Mechanical ventilation [Unknown]
  - Renal failure [Unknown]
  - Hospitalisation [Unknown]
  - Pneumonia [Unknown]
  - Atrial fibrillation [Unknown]
  - Post procedural complication [Unknown]
  - Procedural nausea [Unknown]
  - Procedural vomiting [Unknown]
